FAERS Safety Report 6096897-2 (Version None)
Quarter: 2009Q1

REPORT INFORMATION
  Report Type: 
  Country: None (occurrence: None)
  Receive Date: 20090223
  Receipt Date: 20080314
  Transmission Date: 20090719
  Serious: Yes (Other)
  Sender: FDA-Public Use
  Company Number: WAES 0803USA02522

PATIENT

DRUGS (2)
  1. ZOCOR [Suspect]
     Dosage: 20 MG/DAILY/PO
     Route: 048
  2. LOPID [Concomitant]

REACTIONS (1)
  - RHABDOMYOLYSIS [None]
